FAERS Safety Report 12286333 (Version 2)
Quarter: 2016Q2

REPORT INFORMATION
  Report Type: Spontaneous
  Country: US (occurrence: US)
  Receive Date: 20160420
  Receipt Date: 20160527
  Transmission Date: 20160815
  Serious: Yes (Hospitalization)
  Sender: FDA-Public Use
  Company Number: US-PFIZER INC-2016195019

PATIENT
  Age: 79 Year
  Sex: Female
  Weight: 54 kg

DRUGS (12)
  1. ZOLOFT [Suspect]
     Active Substance: SERTRALINE HYDROCHLORIDE
     Indication: NERVOUS SYSTEM DISORDER
     Dosage: 12.5 MG, 1X/DAY (1/2 25MG TABLET ONCE DAILY)
     Dates: start: 20160307
  2. BABY ASPIRIN [Concomitant]
     Active Substance: ASPIRIN
     Indication: ANTICOAGULANT THERAPY
     Dosage: 81 MG, AS NEEDED
  3. OSCAL [Concomitant]
     Active Substance: CALCIUM CARBONATE
     Indication: BONE DISORDER
     Dosage: 500 MG, 1X/DAY
     Dates: start: 2014
  4. KLONOPIN [Concomitant]
     Active Substance: CLONAZEPAM
     Indication: NERVOUSNESS
     Dosage: (0.25MG 1/4 TABLET AS NEEDED)
     Dates: start: 20160213
  5. ROBITUSSIN DM [Concomitant]
     Active Substance: DEXTROMETHORPHAN HYDROBROMIDE\GUAIFENESIN
     Indication: BRONCHITIS
     Dosage: 2 TEASPOONS A DAY, ONCE IN AWHILE
     Dates: end: 201603
  6. TYLENOL [Concomitant]
     Active Substance: ACETAMINOPHEN
     Indication: HEADACHE
     Dosage: 325 MG, AS NEEDED
  7. ZOLOFT [Suspect]
     Active Substance: SERTRALINE HYDROCHLORIDE
     Indication: ANXIETY
  8. SIMETHICONE (DIMETHICONE) [Concomitant]
     Active Substance: DIMETHICONE
     Indication: FLATULENCE
     Dosage: UNK (AFTER MEALS)
     Dates: start: 2010
  9. SIMVASTATIN. [Concomitant]
     Active Substance: SIMVASTATIN
     Indication: BLOOD CHOLESTEROL
     Dosage: 5 MG, 1X/DAY
  10. ZYRTEC [Concomitant]
     Active Substance: CETIRIZINE HYDROCHLORIDE
     Indication: SINUS DISORDER
     Dosage: (HALF 5 MG TABLET AS NEEDED)
  11. ZOLOFT [Suspect]
     Active Substance: SERTRALINE HYDROCHLORIDE
     Indication: TREMOR
  12. NORVASC [Concomitant]
     Active Substance: AMLODIPINE BESYLATE
     Indication: BLOOD PRESSURE ABNORMAL
     Dosage: 5 MG, 1X/DAY

REACTIONS (11)
  - Feeling cold [Not Recovered/Not Resolved]
  - Appetite disorder [Not Recovered/Not Resolved]
  - Malaise [Unknown]
  - Nervousness [Recovered/Resolved]
  - Middle insomnia [Not Recovered/Not Resolved]
  - Dry mouth [Recovered/Resolved]
  - Feeling abnormal [Not Recovered/Not Resolved]
  - Night sweats [Recovered/Resolved]
  - Flatulence [Not Recovered/Not Resolved]
  - Drug intolerance [Unknown]
  - Somnolence [Recovered/Resolved]

NARRATIVE: CASE EVENT DATE: 20160307
